FAERS Safety Report 9669559 (Version 1)
Quarter: 2013Q4

REPORT INFORMATION
  Report Type: Spontaneous
  Country: ES (occurrence: ES)
  Receive Date: 20131105
  Receipt Date: 20131105
  Transmission Date: 20140711
  Serious: Yes (Other)
  Sender: FDA-Public Use
  Company Number: ES-FRI-1000050745

PATIENT
  Age: 75 Year
  Sex: Male

DRUGS (1)
  1. ACLIDINIUM [Suspect]
     Indication: CHRONIC OBSTRUCTIVE PULMONARY DISEASE
     Dosage: 24 MICROG
     Route: 055
     Dates: start: 20130917, end: 201309

REACTIONS (2)
  - Headache [Recovered/Resolved]
  - Rash [Recovered/Resolved]
